FAERS Safety Report 9920289 (Version 1)
Quarter: 2014Q1

REPORT INFORMATION
  Report Type: Spontaneous
  Country: FR (occurrence: FR)
  Receive Date: 20140224
  Receipt Date: 20140224
  Transmission Date: 20141002
  Serious: Yes (Other)
  Sender: FDA-Public Use
  Company Number: PHHY2014FR021334

PATIENT
  Age: 88 Year
  Sex: Male

DRUGS (2)
  1. GLIVEC [Suspect]
     Indication: CHRONIC MYELOID LEUKAEMIA
     Dosage: 400 MG, DAILY
     Route: 048
     Dates: start: 2011
  2. GLIVEC [Suspect]
     Dosage: 200 MG, DAILY
     Route: 048

REACTIONS (2)
  - Retinal neovascularisation [Not Recovered/Not Resolved]
  - Eye haemorrhage [Not Recovered/Not Resolved]
